FAERS Safety Report 4498288-4 (Version None)
Quarter: 2004Q3

REPORT INFORMATION
  Report Type: 
  Country: None (occurrence: None)
  Receive Date: 20040927
  Receipt Date: 20040625
  Transmission Date: 20050211
  Serious: No
  Sender: FDA-Public Use
  Company Number: USA040670032

PATIENT
  Age: 50 Year
  Sex: Male
  Weight: 132 kg

DRUGS (3)
  1. STRATTERA [Suspect]
     Dosage: 80 MG DAY
     Dates: start: 20040101
  2. ZOLOFT [Concomitant]
  3. EFFEXOR [Concomitant]

REACTIONS (12)
  - CONSTIPATION [None]
  - DECREASED APPETITE [None]
  - DEPRESSION [None]
  - DIZZINESS [None]
  - DRY MOUTH [None]
  - DYSURIA [None]
  - ERECTILE DYSFUNCTION [None]
  - FATIGUE [None]
  - LIBIDO DECREASED [None]
  - MOOD SWINGS [None]
  - PROSTATIC SPECIFIC ANTIGEN INCREASED [None]
  - URINARY RETENTION [None]
